FAERS Safety Report 15042821 (Version 1)
Quarter: 2018Q2

REPORT INFORMATION
  Report Type: Spontaneous
  Country: US (occurrence: US)
  Receive Date: 20180621
  Receipt Date: 20180621
  Transmission Date: 20180711
  Serious: Yes (Other)
  Sender: FDA-Public Use
  Company Number: US-SA-2017SA254420

PATIENT
  Age: 69 Year
  Sex: Female
  Weight: 93 kg

DRUGS (4)
  1. ADRIAMYCIN [DOXORUBICIN] [Concomitant]
  2. TAXOTERE [Suspect]
     Active Substance: DOCETAXEL
     Indication: BREAST CANCER
     Dosage: 188 MG
     Route: 042
     Dates: start: 20031001, end: 20031001
  3. TAXOTERE [Suspect]
     Active Substance: DOCETAXEL
     Dosage: 188 MG
     Route: 042
     Dates: start: 20031213, end: 20031213
  4. NEOSAR [Concomitant]
     Active Substance: CYCLOPHOSPHAMIDE

REACTIONS (2)
  - Alopecia [Recovering/Resolving]
  - Psychological trauma [Unknown]

NARRATIVE: CASE EVENT DATE: 20040101
